FAERS Safety Report 21191842 (Version 4)
Quarter: 2022Q3

REPORT INFORMATION
  Report Type: Spontaneous
  Country: MX (occurrence: MX)
  Receive Date: 20220809
  Receipt Date: 20220926
  Transmission Date: 20221027
  Serious: Yes (Other)
  Sender: FDA-Public Use
  Company Number: MX-PFIZER INC-PV202200039185

PATIENT
  Age: 12 Year
  Sex: Male
  Weight: 38 kg

DRUGS (2)
  1. BENEFIX [Suspect]
     Active Substance: COAGULATION FACTOR IX RECOMBINANT HUMAN\ISOPROPYL ALCOHOL
     Dosage: 2000 UL, WEEKLY
     Route: 042
  2. BENEFIX [Suspect]
     Active Substance: COAGULATION FACTOR IX RECOMBINANT HUMAN\ISOPROPYL ALCOHOL
     Dosage: 2000 UL, WEEKLY
     Route: 042
     Dates: start: 20220912

REACTIONS (2)
  - Pain in extremity [Recovering/Resolving]
  - Underweight [Unknown]

NARRATIVE: CASE EVENT DATE: 20220808
